FAERS Safety Report 9397826 (Version 1)
Quarter: 2013Q3

REPORT INFORMATION
  Report Type: Spontaneous
  Country: US (occurrence: US)
  Receive Date: 20130712
  Receipt Date: 20130712
  Transmission Date: 20140515
  Serious: Yes (Other)
  Sender: FDA-Public Use
  Company Number: US-PFIZER INC-2013205055

PATIENT
  Age: 6 Decade
  Sex: Female

DRUGS (2)
  1. XELJANZ [Suspect]
     Indication: RHEUMATOID ARTHRITIS
     Dosage: 5 MG, 2X/DAY
     Dates: start: 2013, end: 2013
  2. METHOTREXATE [Suspect]
     Dosage: UNK
     Dates: end: 2013

REACTIONS (1)
  - Sepsis [Recovering/Resolving]
